FAERS Safety Report 8399199-4 (Version None)
Quarter: 2012Q2

REPORT INFORMATION
  Report Type: 
  Country: None (occurrence: None)
  Receive Date: 20120531
  Receipt Date: 20120524
  Transmission Date: 20120825
  Serious: Yes (Hospitalization)
  Sender: FDA-Public Use
  Company Number: US-GLAXOSMITHKLINE-A0905709A

PATIENT
  Age: 62 Year
  Sex: Male
  Weight: 95.5 kg

DRUGS (7)
  1. METFORMIN HCL [Concomitant]
  2. LEVOTHYROXINE SODIUM [Concomitant]
  3. LEVEMIR [Concomitant]
  4. LISINOPRIL [Concomitant]
  5. VIAGRA [Concomitant]
  6. AVANDIA [Suspect]
     Indication: DIABETES MELLITUS
     Dosage: 4MG PER DAY
     Route: 048
     Dates: start: 20020101, end: 20070630
  7. SIMVASTATIN [Concomitant]

REACTIONS (3)
  - MYOCARDIAL INFARCTION [None]
  - ARTERIOSCLEROSIS [None]
  - CARDIAC FAILURE CONGESTIVE [None]
